FAERS Safety Report 17771048 (Version 1)
Quarter: 2020Q2

REPORT INFORMATION
  Report Type: Spontaneous
  Country: US (occurrence: US)
  Receive Date: 20200512
  Receipt Date: 20200512
  Transmission Date: 20200714
  Serious: No
  Sender: FDA-Public Use
  Company Number: US-FDC LIMITED-2083711

PATIENT
  Age: 75 Year
  Sex: Female
  Weight: 65.91 kg

DRUGS (1)
  1. CIPROFLOXACIN. [Suspect]
     Active Substance: CIPROFLOXACIN
     Indication: EAR PAIN
     Route: 001
     Dates: start: 20200416

REACTIONS (4)
  - Incorrect route of product administration [Unknown]
  - Product prescribing error [Unknown]
  - Headache [Unknown]
  - Product use in unapproved indication [Unknown]
